FAERS Safety Report 13984510 (Version 1)
Quarter: 2017Q3

REPORT INFORMATION
  Report Type: Spontaneous
  Country: FR (occurrence: FR)
  Receive Date: 20170918
  Receipt Date: 20170918
  Transmission Date: 20171128
  Serious: Yes (Death)
  Sender: FDA-Public Use
  Company Number: FR-SA-2017SA171866

PATIENT
  Age: 68 Year
  Sex: Male

DRUGS (2)
  1. FABRAZYME [Suspect]
     Active Substance: AGALSIDASE BETA
     Dosage: DOSE: 2 VIALS
     Route: 041
  2. FABRAZYME [Suspect]
     Active Substance: AGALSIDASE BETA
     Dosage: DOSE: 3 VIALS
     Route: 041

REACTIONS (6)
  - Loss of consciousness [Fatal]
  - Product use issue [Unknown]
  - Intraventricular haemorrhage [Fatal]
  - Haemorrhage [Fatal]
  - Vomiting [Fatal]
  - Urinary incontinence [Fatal]

NARRATIVE: CASE EVENT DATE: 20170715
